FAERS Safety Report 10440611 (Version 2)
Quarter: 2014Q3

REPORT INFORMATION
  Report Type: Spontaneous
  Country: US (occurrence: US)
  Receive Date: 20140909
  Receipt Date: 20140909
  Transmission Date: 20150326
  Serious: Yes (Hospitalization)
  Sender: FDA-Public Use
  Company Number: US-JNJFOC-20140902031

PATIENT
  Sex: Male

DRUGS (12)
  1. SPIRONOLACTONE. [Concomitant]
     Active Substance: SPIRONOLACTONE
  2. HYDRALAZINE HCL [Concomitant]
     Active Substance: HYDRALAZINE HYDROCHLORIDE
  3. ISOSORBIDE [Concomitant]
     Active Substance: ISOSORBIDE
  4. TORSEMIDE. [Concomitant]
     Active Substance: TORSEMIDE
  5. CALCITRIOL. [Concomitant]
     Active Substance: CALCITRIOL
  6. DIGOXIN. [Concomitant]
     Active Substance: DIGOXIN
  7. WARFARIN [Concomitant]
     Active Substance: WARFARIN
  8. SYNTHROID [Concomitant]
     Active Substance: LEVOTHYROXINE SODIUM
  9. IMBRUVICA [Suspect]
     Active Substance: IBRUTINIB
     Indication: CHRONIC LYMPHOCYTIC LEUKAEMIA
     Route: 048
     Dates: start: 201407, end: 201408
  10. ALLOPURINOL. [Concomitant]
     Active Substance: ALLOPURINOL
  11. SIMVASTATIN. [Concomitant]
     Active Substance: SIMVASTATIN
  12. METOPROLOL [Concomitant]
     Active Substance: METOPROLOL

REACTIONS (4)
  - Palpitations [Unknown]
  - Heart rate irregular [Unknown]
  - Ventricular tachycardia [Recovered/Resolved]
  - Ventricular fibrillation [Recovered/Resolved]

NARRATIVE: CASE EVENT DATE: 2014
